FAERS Safety Report 20384139 (Version 1)
Quarter: 2022Q1

REPORT INFORMATION
  Report Type: Spontaneous
  Country: GB (occurrence: None)
  Receive Date: 20220127
  Receipt Date: 20220127
  Transmission Date: 20220423
  Serious: Yes (Other)
  Sender: FDA-Public Use
  Company Number: 2022A032040

PATIENT
  Age: 74 Year
  Sex: Female
  Weight: 66 kg

DRUGS (3)
  1. DAPAGLIFLOZIN [Suspect]
     Active Substance: DAPAGLIFLOZIN
     Indication: Cardiac failure chronic
     Dosage: 10MG
     Route: 048
     Dates: start: 20210920, end: 20220107
  2. AMITRIPTYLINE [Concomitant]
     Active Substance: AMITRIPTYLINE
  3. TOPICAL OESTROGEN [Concomitant]

REACTIONS (1)
  - Vulvovaginal pain [Recovering/Resolving]

NARRATIVE: CASE EVENT DATE: 20211010
